FAERS Safety Report 9422671 (Version 3)
Quarter: 2013Q4

REPORT INFORMATION
  Report Type: Spontaneous
  Country: US (occurrence: US)
  Receive Date: 20130726
  Receipt Date: 20131122
  Transmission Date: 20140711
  Serious: Yes (Death, Other)
  Sender: FDA-Public Use
  Company Number: US-PURDUE-USA-2013-0104899

PATIENT
  Age: 17 Year
  Sex: Female
  Weight: 47.62 kg

DRUGS (1)
  1. DILAUDID - HP INJECTION [Suspect]
     Indication: OROPHARYNGEAL PAIN
     Dosage: 4 MG, SEE TEXT
     Route: 051
     Dates: start: 20130404

REACTIONS (5)
  - Epstein-Barr virus infection [Fatal]
  - Loss of consciousness [Unknown]
  - Respiratory arrest [Unknown]
  - Respiratory failure [Unknown]
  - Cardiac failure [Unknown]
